FAERS Safety Report 10174606 (Version 2)
Quarter: 2014Q3

REPORT INFORMATION
  Report Type: Spontaneous
  Country: CA (occurrence: CA)
  Receive Date: 20140515
  Receipt Date: 20140806
  Transmission Date: 20150326
  Serious: Yes (Death, Hospitalization)
  Sender: FDA-Public Use
  Company Number: CA-GLAXOSMITHKLINE-A1056221A

PATIENT
  Sex: Female
  Weight: 50.2 kg

DRUGS (2)
  1. FLOLAN [Suspect]
     Active Substance: EPOPROSTENOL SODIUM
     Indication: PULMONARY ARTERIAL HYPERTENSION
     Dosage: 20000NG PER DAY
     Route: 065
     Dates: start: 20131016
  2. FLOLAN [Suspect]
     Active Substance: EPOPROSTENOL SODIUM
     Indication: PULMONARY ARTERIAL HYPERTENSION
     Route: 065
     Dates: start: 20131016

REACTIONS (6)
  - Lung infection [Unknown]
  - Dyspnoea [Unknown]
  - Nasopharyngitis [Unknown]
  - Ill-defined disorder [Unknown]
  - Cardiac failure congestive [Unknown]
  - Death [Fatal]
